FAERS Safety Report 9320198 (Version 1)
Quarter: 2013Q2

REPORT INFORMATION
  Report Type: Spontaneous
  Country: US (occurrence: US)
  Receive Date: 20130530
  Receipt Date: 20130530
  Transmission Date: 20140414
  Serious: No
  Sender: FDA-Public Use
  Company Number: US-009507513-1305USA014501

PATIENT
  Age: 20 Year
  Sex: Female
  Weight: 43.54 kg

DRUGS (1)
  1. IMPLANON [Suspect]
     Indication: CONTRACEPTION
     Dosage: 1 ROD
     Route: 059
     Dates: start: 20111220

REACTIONS (2)
  - Amenorrhoea [Recovered/Resolved]
  - Menometrorrhagia [Unknown]
